FAERS Safety Report 5708856-7 (Version None)
Quarter: 2008Q2

REPORT INFORMATION
  Report Type: 
  Country: None (occurrence: None)
  Receive Date: 20080416
  Receipt Date: 20080407
  Transmission Date: 20081010
  Serious: No
  Sender: FDA-Public Use
  Company Number: 002#2#2007-00265

PATIENT
  Age: 64 Year
  Sex: Female
  Weight: 42.6381 kg

DRUGS (7)
  1. NEUPRO [Suspect]
     Indication: PARKINSON'S DISEASE
     Dosage: 3MG/24H,L IN 1 D,TRANSDERMAL;  2MG/24H,L IN 1 D,TRANSDERMAL
     Route: 062
     Dates: start: 20070801
  2. NEUPRO [Suspect]
     Indication: PARKINSON'S DISEASE
     Dosage: 3MG/24H,L IN 1 D,TRANSDERMAL;  2MG/24H,L IN 1 D,TRANSDERMAL
     Route: 062
     Dates: start: 20070908
  3. REQUIP [Concomitant]
  4. SINEMET [Concomitant]
  5. LEVODOPA [Concomitant]
  6. SYNTHROID [Concomitant]
  7. BENADRYL [Concomitant]

REACTIONS (9)
  - ADRENAL DISORDER [None]
  - AGITATION [None]
  - DRY MOUTH [None]
  - FEELING ABNORMAL [None]
  - HEART RATE IRREGULAR [None]
  - HYPERTENSION [None]
  - PARAESTHESIA [None]
  - PHARMACEUTICAL PRODUCT COMPLAINT [None]
  - WRONG TECHNIQUE IN DRUG USAGE PROCESS [None]
